FAERS Safety Report 5108256-7 (Version None)
Quarter: 2006Q3

REPORT INFORMATION
  Report Type: 
  Country: None (occurrence: None)
  Receive Date: 20060914
  Receipt Date: 20060914
  Transmission Date: 20061208
  Serious: Yes (Life-Threatening)
  Sender: FDA-Public Use
  Company Number: None

PATIENT
  Age: 60 Year
  Sex: Male

DRUGS (1)
  1. LOTREL [Suspect]
     Dosage: APPROXIMATELY 4 MONTHS

REACTIONS (5)
  - DYSPNOEA [None]
  - FACE OEDEMA [None]
  - FEELING ABNORMAL [None]
  - RESPIRATORY DISORDER [None]
  - STRIDOR [None]
